FAERS Safety Report 12198363 (Version 1)
Quarter: 2016Q1

REPORT INFORMATION
  Report Type: Spontaneous
  Country: US (occurrence: None)
  Receive Date: 20160321
  Receipt Date: 20160321
  Transmission Date: 20160526
  Serious: No
  Sender: FDA-Public Use
  Company Number: None

PATIENT
  Sex: Male

DRUGS (2)
  1. HUMULIN NOS [Suspect]
     Active Substance: INSULIN HUMAN
  2. NOVOLOG [Suspect]
     Active Substance: INSULIN ASPART

REACTIONS (2)
  - Feeling abnormal [None]
  - Blood glucose increased [None]
